FAERS Safety Report 20681702 (Version 3)
Quarter: 2022Q2

REPORT INFORMATION
  Report Type: Spontaneous
  Country: US (occurrence: US)
  Receive Date: 20220406
  Receipt Date: 20220613
  Transmission Date: 20220721
  Serious: Yes (Other)
  Sender: FDA-Public Use
  Company Number: US-BEH-2022143949

PATIENT
  Sex: Female

DRUGS (2)
  1. HIZENTRA [Suspect]
     Active Substance: HUMAN IMMUNOGLOBULIN G
     Indication: Hypogammaglobulinaemia
     Dosage: 8 GRAM, QW
     Route: 058
     Dates: start: 202202
  2. HIZENTRA [Suspect]
     Active Substance: HUMAN IMMUNOGLOBULIN G
     Dosage: 8 GRAM, QW
     Route: 058
     Dates: start: 20220215

REACTIONS (12)
  - Renal failure [Unknown]
  - Vein disorder [Unknown]
  - Urine output decreased [Unknown]
  - Decreased appetite [Unknown]
  - Dyspnoea [Unknown]
  - Peripheral swelling [Unknown]
  - Infusion site pain [Unknown]
  - Infusion site pruritus [Unknown]
  - Headache [Unknown]
  - Pyrexia [Unknown]
  - Swelling [Unknown]
  - Illness [Unknown]
